FAERS Safety Report 23944970 (Version 1)
Quarter: 2024Q2

REPORT INFORMATION
  Report Type: Spontaneous
  Country: US (occurrence: US)
  Receive Date: 20240606
  Receipt Date: 20240606
  Transmission Date: 20240716
  Serious: Yes (Hospitalization, Other)
  Sender: FDA-Public Use
  Company Number: US-BRISTOL-MYERS SQUIBB COMPANY-2024-088788

PATIENT
  Age: 79 Year
  Sex: Male
  Weight: 63.05 kg

DRUGS (1)
  1. LENALIDOMIDE [Suspect]
     Active Substance: LENALIDOMIDE
     Indication: Plasma cell myeloma
     Dosage: FREQUENCY: 1 CAPSULE PO ONCE DAILY FOR 7 DAYS, THEN OFF FOR 7 DAYS EVERY 28 DAYS
     Route: 048
     Dates: start: 20240318

REACTIONS (2)
  - Pneumonia [Recovering/Resolving]
  - Haematological infection [Recovering/Resolving]

NARRATIVE: CASE EVENT DATE: 20240522
